FAERS Safety Report 9844916 (Version 1)
Quarter: 2014Q1

REPORT INFORMATION
  Report Type: Spontaneous
  Country: US (occurrence: None)
  Receive Date: 20140122
  Receipt Date: 20140122
  Transmission Date: 20141002
  Serious: Yes (Death)
  Sender: FDA-Public Use
  Company Number: B0959214A

PATIENT
  Age: 65 Year
  Sex: Female

DRUGS (3)
  1. BUPROPION HYDROCHLORIDE [Suspect]
     Indication: PRODUCT USED FOR UNKNOWN INDICATION
     Dosage: UNK/UNK/ORAL
     Route: 048
  2. CITALOPRAM [Suspect]
     Dosage: UNK/UNK/ORAL
     Route: 048
  3. DIPHENHYDRAMINE W/PARACETAMOL [Suspect]
     Dosage: UNK/UNK/ORAL
     Route: 048

REACTIONS (1)
  - Completed suicide [None]
